FAERS Safety Report 6469269-6 (Version None)
Quarter: 2009Q4

REPORT INFORMATION
  Report Type: 
  Country: None (occurrence: None)
  Receive Date: 20091203
  Receipt Date: 20071018
  Transmission Date: 20100525
  Serious: Yes (Hospitalization)
  Sender: FDA-Public Use
  Company Number: US-ELI_LILLY_AND_COMPANY-US200708003844

PATIENT
  Age: 90 Year
  Sex: Male

DRUGS (2)
  1. FORTEO [Suspect]
     Dosage: UNK, QOD
     Dates: start: 20070810, end: 20071001
  2. FORTEO [Suspect]
     Dosage: UNK, QOD
     Dates: start: 20071001

REACTIONS (6)
  - NASOPHARYNGITIS [None]
  - PALLOR [None]
  - PNEUMONIA [None]
  - PNEUMONIA ASPIRATION [None]
  - TREMOR [None]
  - VOMITING [None]
